FAERS Safety Report 4291229-4 (Version None)
Quarter: 2004Q1

REPORT INFORMATION
  Report Type: 
  Country: None (occurrence: None)
  Receive Date: 20040211
  Receipt Date: 20031117
  Transmission Date: 20041129
  Serious: No
  Sender: FDA-Public Use
  Company Number: US-GLAXOSMITHKLINE-A0440036A

PATIENT
  Age: 39 Year
  Sex: Male

DRUGS (8)
  1. PAXIL [Suspect]
     Indication: AGITATION
     Dosage: 20MG PER DAY
     Route: 048
  2. LIPITOR [Concomitant]
  3. ALTACE [Concomitant]
  4. LOPRESSOR [Concomitant]
  5. ASPIRIN [Concomitant]
  6. OMEGA 3 FISH OIL [Concomitant]
  7. FOLIC ACID [Concomitant]
  8. MULTI-VITAMIN [Concomitant]

REACTIONS (3)
  - DROOLING [None]
  - INCREASED APPETITE [None]
  - WEIGHT INCREASED [None]
